FAERS Safety Report 20920058 (Version 1)
Quarter: 2022Q2

REPORT INFORMATION
  Report Type: Spontaneous
  Country: US (occurrence: None)
  Receive Date: 20220605
  Receipt Date: 20220605
  Transmission Date: 20220721
  Serious: No
  Sender: FDA-Public Use
  Company Number: None

PATIENT
  Age: 64 Year
  Sex: Female
  Weight: 72 kg

DRUGS (9)
  1. TIZANIDINE HYDROCHLORIDE [Suspect]
     Active Substance: TIZANIDINE HYDROCHLORIDE
     Indication: Tremor
     Dosage: FREQUENCY : AS NEEDED;?
     Route: 048
  2. TIZANIDINE [Concomitant]
     Active Substance: TIZANIDINE
  3. LEVOTHYROXINE [Concomitant]
     Active Substance: LEVOTHYROXINE
  4. CELEBREX [Concomitant]
     Active Substance: CELECOXIB
  5. potassium tab [Concomitant]
  6. chlorthiladone [Concomitant]
  7. ESCITALOPRAM [Concomitant]
     Active Substance: ESCITALOPRAM OXALATE
  8. CRESTOR [Concomitant]
     Active Substance: ROSUVASTATIN CALCIUM
  9. ACETAMINOPHEN [Concomitant]
     Active Substance: ACETAMINOPHEN

REACTIONS (4)
  - Muscular weakness [None]
  - Muscle spasms [None]
  - Metamorphopsia [None]
  - Feeling abnormal [None]

NARRATIVE: CASE EVENT DATE: 20220525
